FAERS Safety Report 18223544 (Version 1)
Quarter: 2020Q3

REPORT INFORMATION
  Report Type: Spontaneous
  Country: US (occurrence: US)
  Receive Date: 20200901
  Receipt Date: 20200901
  Transmission Date: 20201103
  Serious: No
  Sender: FDA-Public Use
  Company Number: None

PATIENT
  Age: 48 Year
  Sex: Female
  Weight: 1.36 kg

DRUGS (1)
  1. TALTZ [Suspect]
     Active Substance: IXEKIZUMAB
     Indication: PSORIASIS
     Dosage: FREQUENCY: WEEK 12 THEN EVERY 4 WEEKS AS DIRECTED.
     Route: 058
     Dates: start: 202007

REACTIONS (3)
  - Injection site rash [None]
  - Sinusitis [None]
  - Injection site pruritus [None]
